FAERS Safety Report 11190121 (Version 1)
Quarter: 2015Q2

REPORT INFORMATION
  Report Type: Spontaneous
  Country: IE (occurrence: IE)
  Receive Date: 20150615
  Receipt Date: 20150615
  Transmission Date: 20150821
  Serious: Yes (Other)
  Sender: FDA-Public Use
  Company Number: IE-EMD SERONO-7128832

PATIENT
  Sex: Female

DRUGS (3)
  1. REBIF [Suspect]
     Active Substance: INTERFERON BETA-1A
     Indication: RELAPSING-REMITTING MULTIPLE SCLEROSIS
     Route: 058
     Dates: start: 20050601, end: 20090107
  2. REBIF [Suspect]
     Active Substance: INTERFERON BETA-1A
     Dates: start: 20101014, end: 20150603
  3. REBIF [Suspect]
     Active Substance: INTERFERON BETA-1A
     Dates: start: 20090730, end: 20100824

REACTIONS (4)
  - Tooth disorder [Unknown]
  - Gingival abscess [Recovering/Resolving]
  - Pain in jaw [Recovering/Resolving]
  - Neuralgia [Recovering/Resolving]
